FAERS Safety Report 7483322-X (Version None)
Quarter: 2011Q2

REPORT INFORMATION
  Report Type: 
  Country: None (occurrence: None)
  Receive Date: 20110509
  Receipt Date: 20110429
  Transmission Date: 20111010
  Serious: Yes (Other)
  Sender: FDA-Public Use
  Company Number: DSU-2011-01130

PATIENT
  Age: 69 Year
  Sex: Male
  Weight: 87.9978 kg

DRUGS (1)
  1. AZOR [Suspect]
     Indication: HYPERTENSION
     Dosage: 5/20MG (QD), PER ORAL
     Route: 048
     Dates: start: 20090101, end: 20110224

REACTIONS (3)
  - PERSONALITY CHANGE [None]
  - COELIAC DISEASE [None]
  - WEIGHT DECREASED [None]
